FAERS Safety Report 18694913 (Version 8)
Quarter: 2024Q4

REPORT INFORMATION
  Report Type: Report from Study
  Country: SE (occurrence: SE)
  Receive Date: 20210104
  Receipt Date: 20241112
  Transmission Date: 20250115
  Serious: Yes (Death, Life-Threatening, Hospitalization, Other)
  Sender: JOHNSON AND JOHNSON
  Company Number: SE-JNJFOC-20201209908

PATIENT
  Age: 7 Decade
  Sex: Female
  Weight: 96 kg

DRUGS (23)
  1. SELEXIPAG [Suspect]
     Active Substance: SELEXIPAG
     Indication: Pulmonary arterial hypertension
     Route: 048
     Dates: start: 20201104, end: 20201111
  2. SELEXIPAG [Suspect]
     Active Substance: SELEXIPAG
     Route: 048
     Dates: start: 20201118, end: 20201202
  3. SELEXIPAG [Suspect]
     Active Substance: SELEXIPAG
     Route: 048
     Dates: start: 20201202, end: 20201212
  4. SELEXIPAG [Suspect]
     Active Substance: SELEXIPAG
     Route: 048
     Dates: start: 20201221, end: 20201228
  5. SELEXIPAG [Suspect]
     Active Substance: SELEXIPAG
     Route: 048
     Dates: start: 20210128, end: 20210216
  6. AMBRISENTAN [Concomitant]
     Active Substance: AMBRISENTAN
     Indication: Pulmonary arterial hypertension
     Route: 048
     Dates: start: 20170821
  7. AMBRISENTAN [Concomitant]
     Active Substance: AMBRISENTAN
     Route: 048
     Dates: start: 20131112, end: 20170821
  8. METOKLOPRAMID [METOCLOPRAMIDE] [Concomitant]
     Indication: Prophylaxis of nausea and vomiting
     Route: 048
     Dates: start: 20201103
  9. AMITRIPTYLINE [Concomitant]
     Active Substance: AMITRIPTYLINE
     Indication: Depression
     Route: 048
     Dates: start: 20200619
  10. GABAPENTIN [Concomitant]
     Active Substance: GABAPENTIN
     Indication: Pain
     Route: 048
     Dates: start: 20141219
  11. ACETAMINOPHEN [Concomitant]
     Active Substance: ACETAMINOPHEN
     Indication: Pain
     Route: 048
     Dates: start: 20201026
  12. OXYCODONE [Concomitant]
     Active Substance: OXYCODONE
     Indication: Pain
     Route: 048
     Dates: start: 20201026
  13. ESTRADIOL [Concomitant]
     Active Substance: ESTRADIOL
     Route: 050
     Dates: start: 20150910
  14. MAGNESIUM HYDROXIDE [Concomitant]
     Active Substance: MAGNESIUM HYDROXIDE
     Indication: Magnesium deficiency
     Route: 048
     Dates: start: 20140911
  15. ATORVASTATIN [Concomitant]
     Active Substance: ATORVASTATIN
     Indication: Hyperlipidaemia
     Route: 048
     Dates: start: 20141219
  16. BISOPROLOL [Concomitant]
     Active Substance: BISOPROLOL\BISOPROLOL FUMARATE
     Indication: Cardiac disorder
     Route: 048
     Dates: start: 20201219, end: 20210130
  17. SPIRONOLACTONE [Concomitant]
     Active Substance: SPIRONOLACTONE
     Route: 048
     Dates: start: 20170602
  18. FOLIC ACID [Concomitant]
     Active Substance: FOLIC ACID
     Indication: Folate deficiency
     Route: 048
     Dates: start: 20200313
  19. IRON [Concomitant]
     Active Substance: IRON
     Indication: Blood iron decreased
     Route: 048
     Dates: start: 20151215, end: 20201231
  20. ASPIRIN [Concomitant]
     Active Substance: ASPIRIN
     Route: 048
     Dates: start: 20121112, end: 20201227
  21. URSODIOL [Concomitant]
     Active Substance: URSODIOL
     Indication: Primary biliary cholangitis
     Route: 048
     Dates: start: 20160630
  22. ESOMEPRAZOLE [Concomitant]
     Active Substance: ESOMEPRAZOLE
     Indication: Gastritis
     Route: 048
  23. FUROSEMIDE [Concomitant]
     Active Substance: FUROSEMIDE
     Route: 048
     Dates: start: 2013

REACTIONS (9)
  - Gastrointestinal haemorrhage [Fatal]
  - Renal failure [Recovered/Resolved]
  - Anaemia [Fatal]
  - Ascites [Not Recovered/Not Resolved]
  - Hypotonia [Recovered/Resolved]
  - Hyponatraemia [Recovered/Resolved]
  - Aspiration [Unknown]
  - Hypotension [Unknown]
  - Renal impairment [Unknown]

NARRATIVE: CASE EVENT DATE: 20201204
